FAERS Safety Report 18241441 (Version 1)
Quarter: 2020Q3

REPORT INFORMATION
  Report Type: Spontaneous
  Country: DE (occurrence: DE)
  Receive Date: 20200908
  Receipt Date: 20200908
  Transmission Date: 20201103
  Serious: Yes (Hospitalization, Other)
  Sender: FDA-Public Use
  Company Number: DE-SA-2020SA234860

PATIENT

DRUGS (22)
  1. COLECALCIFEROL [Interacting]
     Active Substance: CHOLECALCIFEROL
     Dosage: 20000 UNK, QW
     Route: 065
  2. PREGABALIN. [Interacting]
     Active Substance: PREGABALIN
     Indication: NEUROPATHY PERIPHERAL
     Dosage: 25 MG, 0?0?1?0
     Route: 065
  3. HYLO?VISION [Interacting]
     Active Substance: HYALURONATE SODIUM
     Indication: DRY EYE
     Dosage: UNK UNK, TID
     Route: 065
  4. ELIQUIS [Interacting]
     Active Substance: APIXABAN
     Indication: ATRIAL FIBRILLATION
     Dosage: 2.5 MG, BID
     Route: 065
     Dates: start: 2018
  5. NOVALGIN (METAMIZOLE SODIUM) [Interacting]
     Active Substance: METAMIZOLE SODIUM
     Dosage: 500 MG, PRN
     Route: 065
  6. ALLOPURINOL. [Interacting]
     Active Substance: ALLOPURINOL
     Dosage: 100 MG, QD
     Route: 065
  7. MIRTAZAPINE. [Interacting]
     Active Substance: MIRTAZAPINE
     Indication: SLEEP DISORDER
     Dosage: 15 MG, QD
     Route: 065
  8. XIPAMIDE [Interacting]
     Active Substance: XIPAMIDE
     Dosage: 40 MG, QD
     Route: 065
  9. GENTAMICIN. [Interacting]
     Active Substance: GENTAMICIN
     Dosage: UNK UNK, QD
     Route: 065
  10. MILGAMMA PROTECT [Interacting]
     Active Substance: BENFOTIAMINE
     Indication: NEUROPATHY PERIPHERAL
     Dosage: UNK UNK, QD
     Route: 065
  11. MIRFULAN [COD?LIVER OIL;UREA;ZINC OXIDE] [Interacting]
     Active Substance: COD LIVER OIL\UREA\ZINC OXIDE
     Dosage: UNK UNK, PRN
     Route: 065
  12. POTASSIUM CHLORIDE. [Interacting]
     Active Substance: POTASSIUM CHLORIDE
     Dosage: UNK UNK, QD
     Route: 065
  13. INSULIN [Interacting]
     Active Substance: INSULIN NOS
     Dosage: 300 E/ML 0?0?22?0
     Route: 065
  14. ATORVASTATIN CALCIUM. [Interacting]
     Active Substance: ATORVASTATIN CALCIUM
     Dosage: 20 MG, QD
     Route: 065
  15. MACROGOL 3350/POTASSIUM CHLORIDE/SODIUM BICARBONATE/SODIUM CHLORIDE [Interacting]
     Active Substance: POLYETHYLENE GLYCOL 3350\POTASSIUM CHLORIDE\SODIUM BICARBONATE\SODIUM CHLORIDE
     Indication: CONSTIPATION
     Dosage: UNK
     Route: 065
  16. PANTOPRAZOLE [Interacting]
     Active Substance: PANTOPRAZOLE
     Dosage: 20 MG, QD
     Route: 065
  17. NITROLINGUAL [Interacting]
     Active Substance: NITROGLYCERIN
     Dosage: UNK UNK, PRN
     Route: 065
  18. TORASEMIDE [Interacting]
     Active Substance: TORSEMIDE
     Indication: DIURETIC THERAPY
     Dosage: 20 MG 2?1?0?0
     Route: 065
  19. INSULIN LISPRO [Suspect]
     Active Substance: INSULIN LISPRO
     Dosage: BEFORE FOOD
     Route: 065
  20. FLORADIX [Interacting]
     Active Substance: IRON
     Dosage: 40?40?0
     Route: 065
  21. ELIQUIS [Interacting]
     Active Substance: APIXABAN
     Indication: CEREBROVASCULAR ACCIDENT PROPHYLAXIS
  22. BISOPROLOL FUMARATE. [Interacting]
     Active Substance: BISOPROLOL FUMARATE
     Dosage: 5 MILLIGRAM, 1/2?0?0
     Route: 065

REACTIONS (2)
  - Drug interaction [Unknown]
  - Gastrointestinal haemorrhage [Unknown]
